FAERS Safety Report 12436230 (Version 2)
Quarter: 2016Q3

REPORT INFORMATION
  Report Type: Report from Study
  Country: US (occurrence: US)
  Receive Date: 20160605
  Receipt Date: 20160711
  Transmission Date: 20161109
  Serious: No
  Sender: FDA-Public Use
  Company Number: US-JNJFOC-20160602894

PATIENT
  Sex: Male

DRUGS (1)
  1. FENTANYL TRANSDERMAL SYSTEM [Suspect]
     Active Substance: FENTANYL
     Indication: PRODUCT USED FOR UNKNOWN INDICATION
     Route: 062

REACTIONS (8)
  - Erythema [Unknown]
  - Skin irritation [Unknown]
  - Incorrect drug administration duration [Unknown]
  - Application site perspiration [Unknown]
  - Dermatitis contact [Unknown]
  - Product quality issue [Unknown]
  - Rash [Unknown]
  - Urticaria [Unknown]
